FAERS Safety Report 10095899 (Version 1)
Quarter: 2014Q2

REPORT INFORMATION
  Report Type: Spontaneous
  Country: CN (occurrence: CN)
  Receive Date: 20140422
  Receipt Date: 20140422
  Transmission Date: 20141212
  Serious: Yes (Hospitalization)
  Sender: FDA-Public Use
  Company Number: CN-PFIZER INC-2014107052

PATIENT
  Age: 33 Year
  Sex: Male
  Weight: 65 kg

DRUGS (2)
  1. DIFLUCAN [Suspect]
     Indication: DRUG THERAPY
     Dosage: 200 MG, 1X/DAY
     Route: 041
     Dates: start: 20120320
  2. DIFLUCAN [Suspect]
     Dosage: UNK
     Route: 041
     Dates: end: 20120429

REACTIONS (1)
  - Psychotic disorder [Recovered/Resolved]
